FAERS Safety Report 26133967 (Version 1)
Quarter: 2025Q4

REPORT INFORMATION
  Report Type: Spontaneous
  Country: GB (occurrence: GB)
  Receive Date: 20251209
  Receipt Date: 20251209
  Transmission Date: 20260118
  Serious: Yes (Other)
  Sender: TEVA
  Company Number: None

PATIENT
  Age: 58 Year
  Weight: 48 kg

DRUGS (1)
  1. ROPINIROLE [Suspect]
     Active Substance: ROPINIROLE
     Indication: Restless legs syndrome
     Dosage: STARTED AT 4MG THEN WITHDREW IN 2.5 OVER 5 MONTHS
     Dates: end: 20251129

REACTIONS (2)
  - Medication error [Unknown]
  - Condition aggravated [Recovering/Resolving]
